FAERS Safety Report 9785069 (Version 2)
Quarter: 2013Q4

REPORT INFORMATION
  Report Type: Spontaneous
  Country: JP (occurrence: JP)
  Receive Date: 20131227
  Receipt Date: 20131227
  Transmission Date: 20140711
  Serious: Yes (Other)
  Sender: FDA-Public Use
  Company Number: JP-ELI_LILLY_AND_COMPANY-JP201312003425

PATIENT
  Age: 45 Year
  Sex: Male

DRUGS (8)
  1. CYMBALTA [Suspect]
     Indication: PRODUCT USED FOR UNKNOWN INDICATION
     Dosage: 60 MG, QD
     Route: 048
     Dates: end: 20131126
  2. REFLEX /01293201/ [Suspect]
     Indication: PRODUCT USED FOR UNKNOWN INDICATION
     Dosage: UNK
     Route: 048
     Dates: end: 20131208
  3. FLUNITRAZEPAM [Concomitant]
     Dosage: UNK
     Route: 048
  4. LEXOTAN [Concomitant]
     Dosage: UNK
     Route: 048
  5. ARTANE [Concomitant]
     Dosage: UNK
     Route: 048
  6. SULPIRIDE [Concomitant]
     Dosage: UNK
     Route: 048
  7. ZETIA [Concomitant]
     Dosage: UNK
     Route: 048
  8. LIPIDIL [Concomitant]
     Dosage: UNK
     Route: 048

REACTIONS (1)
  - Blood triglycerides increased [Recovering/Resolving]
